FAERS Safety Report 25287546 (Version 1)
Quarter: 2025Q2

REPORT INFORMATION
  Report Type: Spontaneous
  Country: US (occurrence: None)
  Receive Date: 20250508
  Receipt Date: 20250508
  Transmission Date: 20250717
  Serious: Yes (Disabling, Other)
  Sender: FDA-CTU
  Company Number: None

PATIENT
  Age: 38 Year
  Sex: Female
  Weight: 119.25 kg

DRUGS (4)
  1. DROPERIDOL [Suspect]
     Active Substance: DROPERIDOL
     Indication: Nausea
     Route: 042
     Dates: start: 20250421, end: 20250421
  2. DROPERIDOL [Suspect]
     Active Substance: DROPERIDOL
     Indication: Pain
  3. TYLENOL [Concomitant]
     Active Substance: ACETAMINOPHEN
  4. IBUPROFEN [Concomitant]
     Active Substance: IBUPROFEN

REACTIONS (8)
  - Feeling abnormal [None]
  - Fatigue [None]
  - Restlessness [None]
  - Panic attack [None]
  - Akathisia [None]
  - Blood pressure increased [None]
  - Heart rate increased [None]
  - Impaired work ability [None]

NARRATIVE: CASE EVENT DATE: 20250421
